FAERS Safety Report 25635025 (Version 4)
Quarter: 2025Q3

REPORT INFORMATION
  Report Type: Spontaneous
  Country: CA (occurrence: CA)
  Receive Date: 20250801
  Receipt Date: 20250926
  Transmission Date: 20251020
  Serious: Yes (Disabling, Other)
  Sender: ALEXION PHARMACEUTICALS
  Company Number: CA-AstraZeneca-CH-00921871AM

PATIENT
  Age: 64 Year
  Sex: Female
  Weight: 90.718 kg

DRUGS (2)
  1. DURVALUMAB [Suspect]
     Active Substance: DURVALUMAB
     Indication: Cholangiocarcinoma
     Dosage: UNK, QMONTH
  2. CISPLATIN [Concomitant]
     Active Substance: CISPLATIN
     Route: 065

REACTIONS (9)
  - Neuropathy peripheral [Not Recovered/Not Resolved]
  - Swelling [Recovered/Resolved]
  - Proteinuria [Unknown]
  - Haemoglobin urine present [Unknown]
  - Blood bilirubin increased [Unknown]
  - Blood alkaline phosphatase increased [Unknown]
  - Gamma-glutamyltransferase increased [Unknown]
  - Alpha 1 foetoprotein increased [Unknown]
  - Metastases to liver [Unknown]

NARRATIVE: CASE EVENT DATE: 20240523
